FAERS Safety Report 10715284 (Version 2)
Quarter: 2015Q1

REPORT INFORMATION
  Report Type: Spontaneous
  Country: GB (occurrence: GB)
  Receive Date: 20150116
  Receipt Date: 20150126
  Transmission Date: 20150721
  Serious: Yes (Other)
  Sender: FDA-Public Use
  Company Number: GB-009507513-1501GBR004279

PATIENT
  Age: 59 Year
  Sex: Male

DRUGS (5)
  1. REBETOL [Suspect]
     Active Substance: RIBAVIRIN
     Dosage: DOSAGE FORM: UNSPECIFIED
     Route: 065
     Dates: start: 20140623
  2. REBETOL [Suspect]
     Active Substance: RIBAVIRIN
     Dosage: DOSAGE FORM: UNSPECIFIED
     Route: 065
     Dates: start: 20140516
  3. PEGASYS [Suspect]
     Active Substance: PEGINTERFERON ALFA-2A
     Indication: PRODUCT USED FOR UNKNOWN INDICATION
     Dosage: DOSAGE FORM: UNSPECIFIED
     Route: 058
     Dates: start: 20140516
  4. REBETOL [Suspect]
     Active Substance: RIBAVIRIN
     Indication: PRODUCT USED FOR UNKNOWN INDICATION
     Dosage: DOSAGE FORM: UNSPECIFIED
     Route: 065
     Dates: start: 20141030
  5. TELAPREVIR [Suspect]
     Active Substance: TELAPREVIR
     Indication: PRODUCT USED FOR UNKNOWN INDICATION
     Route: 048
     Dates: start: 20140505, end: 20140811

REACTIONS (1)
  - Thrombocytopenia [Not Recovered/Not Resolved]

NARRATIVE: CASE EVENT DATE: 20140602
